FAERS Safety Report 4491864-4 (Version None)
Quarter: 2004Q4

REPORT INFORMATION
  Report Type: 
  Country: None (occurrence: None)
  Receive Date: 20041028
  Receipt Date: 20041028
  Transmission Date: 20050328
  Serious: No
  Sender: FDA-Public Use
  Company Number: None

PATIENT
  Sex: Female

DRUGS (2)
  1. PERCOCET [Suspect]
     Dosage: 5/325 2-4 PO Q 6 HRS
     Route: 048
  2. OXYCONTIN [Suspect]
     Dosage: 80 MG 2-3 TABS Q 6 PO
     Route: 048

REACTIONS (2)
  - DIARRHOEA [None]
  - STOMACH DISCOMFORT [None]
